FAERS Safety Report 18462826 (Version 4)
Quarter: 2021Q3

REPORT INFORMATION
  Report Type: Spontaneous
  Country: CA (occurrence: CA)
  Receive Date: 20201104
  Receipt Date: 20210826
  Transmission Date: 20211014
  Serious: Yes (Other)
  Sender: FDA-Public Use
  Company Number: CA-SAMSUNG BIOEPIS-SB-2020-33460

PATIENT
  Age: 47 Year
  Sex: Male
  Weight: 76 kg

DRUGS (5)
  1. PANTOPRAZOLE [Concomitant]
     Active Substance: PANTOPRAZOLE
     Indication: PRODUCT USED FOR UNKNOWN INDICATION
     Route: 048
  2. METHOTREXATE. [Concomitant]
     Active Substance: METHOTREXATE
     Indication: PRODUCT USED FOR UNKNOWN INDICATION
     Route: 048
  3. INFLIXIMAB [Suspect]
     Active Substance: INFLIXIMAB
     Indication: COLITIS ULCERATIVE
     Route: 042
  4. INFLIXIMAB [Suspect]
     Active Substance: INFLIXIMAB
     Indication: PRODUCT USED FOR UNKNOWN INDICATION
     Route: 042
  5. PREDNISONE. [Concomitant]
     Active Substance: PREDNISONE
     Indication: PRODUCT USED FOR UNKNOWN INDICATION
     Dosage: UNKNOWN
     Route: 065

REACTIONS (11)
  - Weight fluctuation [Recovered/Resolved]
  - Condition aggravated [Unknown]
  - Hypertension [Recovered/Resolved]
  - Alanine aminotransferase increased [Recovered/Resolved]
  - Antinuclear antibody positive [Recovered/Resolved]
  - Neutrophil count decreased [Recovered/Resolved]
  - Incorrect dose administered [Recovered/Resolved]
  - White blood cell count decreased [Recovered/Resolved]
  - Off label use [Recovered/Resolved]
  - Impetigo [Recovered/Resolved]
  - Intentional product use issue [Recovered/Resolved]
